FAERS Safety Report 14739311 (Version 3)
Quarter: 2019Q2

REPORT INFORMATION
  Report Type: Report from Study
  Country: US (occurrence: US)
  Receive Date: 20180410
  Receipt Date: 20190521
  Transmission Date: 20190711
  Serious: Yes (Disabling, Other)
  Sender: FDA-Public Use
  Company Number: US-ROCHE-2087901

PATIENT
  Sex: Female
  Weight: 52.21 kg

DRUGS (4)
  1. ESBRIET [Suspect]
     Active Substance: PIRFENIDONE
     Indication: IDIOPATHIC PULMONARY FIBROSIS
     Dosage: ONGOING: UNKNOWN
     Route: 065
  2. OXYGEN. [Concomitant]
     Active Substance: OXYGEN
     Dosage: ONGOING: UNKNOWN
     Route: 065
  3. OXYGEN. [Concomitant]
     Active Substance: OXYGEN
     Dosage: ONGOING: NO
     Route: 065
  4. ESBRIET [Suspect]
     Active Substance: PIRFENIDONE
     Dosage: ONGOING: NO
     Route: 065
     Dates: end: 2018

REACTIONS (14)
  - Stress [Unknown]
  - Wound [Unknown]
  - Liver disorder [Unknown]
  - Influenza [Unknown]
  - Asthenia [Not Recovered/Not Resolved]
  - Joint swelling [Unknown]
  - Cardiac disorder [Not Recovered/Not Resolved]
  - Cough [Not Recovered/Not Resolved]
  - Dyspnoea [Unknown]
  - Unevaluable event [Unknown]
  - Pain in jaw [Unknown]
  - Eructation [Not Recovered/Not Resolved]
  - Respiratory failure [Unknown]
  - Hypertension [Not Recovered/Not Resolved]
